FAERS Safety Report 17731709 (Version 15)
Quarter: 2025Q1

REPORT INFORMATION
  Report Type: Report from Study
  Country: US (occurrence: US)
  Receive Date: 20200501
  Receipt Date: 20250324
  Transmission Date: 20250409
  Serious: Yes (Hospitalization, Other)
  Sender: TAKEDA
  Company Number: US-SHIRE-US202015048

PATIENT
  Age: 56 Year
  Sex: Male
  Weight: 75 kg

DRUGS (39)
  1. .ALPHA.1-PROTEINASE INHIBITOR HUMAN [Suspect]
     Active Substance: .ALPHA.1-PROTEINASE INHIBITOR HUMAN
     Indication: Alpha-1 antitrypsin deficiency
     Dosage: UNK UNK, 1/WEEK
     Dates: start: 20050816
  2. .ALPHA.1-PROTEINASE INHIBITOR HUMAN [Suspect]
     Active Substance: .ALPHA.1-PROTEINASE INHIBITOR HUMAN
     Indication: Hypergammaglobulinaemia
     Dosage: 110 MILLIGRAM/KILOGRAM, 1/WEEK
     Dates: start: 20060905
  3. DIPHENHYDRAMINE [Concomitant]
     Active Substance: DIPHENHYDRAMINE
     Indication: Product used for unknown indication
  4. HEPARIN [Concomitant]
     Active Substance: HEPARIN SODIUM
  5. VITAMIN D3 [Concomitant]
     Active Substance: CHOLECALCIFEROL
     Indication: Product used for unknown indication
  6. SODIUM CHLORIDE [Concomitant]
     Active Substance: SODIUM CHLORIDE
     Indication: Product used for unknown indication
  7. SODIUM CHLORIDE [Concomitant]
     Active Substance: SODIUM CHLORIDE
     Indication: Product used for unknown indication
  8. EPINEPHRINE [Concomitant]
     Active Substance: EPINEPHRINE
     Indication: Product used for unknown indication
  9. DIPHENHYDRAMINE HYDROCHLORIDE [Concomitant]
     Active Substance: DIPHENHYDRAMINE HYDROCHLORIDE
  10. BREO ELLIPTA [Concomitant]
     Active Substance: FLUTICASONE FUROATE\VILANTEROL TRIFENATATE
     Indication: Product used for unknown indication
  11. SIMVASTATIN [Concomitant]
     Active Substance: SIMVASTATIN
     Indication: Product used for unknown indication
  12. SPIRIVA RESPIMAT [Concomitant]
     Active Substance: TIOTROPIUM BROMIDE
     Indication: Product used for unknown indication
  13. Mucinex fast max cold and sinus [Concomitant]
  14. OXYGEN [Concomitant]
     Active Substance: OXYGEN
     Indication: Product used for unknown indication
  15. CLARITIN-D NOS [Concomitant]
     Active Substance: LORATADINE\PSEUDOEPHEDRINE SULFATE
  16. FAMOTIDINE [Concomitant]
     Active Substance: FAMOTIDINE
  17. METFORMIN HYDROCHLORIDE [Concomitant]
     Active Substance: METFORMIN HYDROCHLORIDE
     Indication: Product used for unknown indication
  18. ASPIRIN [Concomitant]
     Active Substance: ASPIRIN
     Indication: Product used for unknown indication
  19. Betamethasone dipropionate, augmented [Concomitant]
  20. PROAIR HFA [Concomitant]
     Active Substance: ALBUTEROL SULFATE
     Indication: Product used for unknown indication
  21. TRIAMCINOLONE ACETONIDE [Concomitant]
     Active Substance: TRIAMCINOLONE ACETONIDE
     Indication: Product used for unknown indication
  22. CIPROFLOXACIN [Concomitant]
     Active Substance: CIPROFLOXACIN
  23. PROMETHAZINE WITH CODEINE [Concomitant]
     Active Substance: CODEINE PHOSPHATE\PROMETHAZINE HYDROCHLORIDE
     Indication: Product used for unknown indication
  24. MYRBETRIQ [Concomitant]
     Active Substance: MIRABEGRON
  25. FLOMAX [Concomitant]
     Active Substance: TAMSULOSIN HYDROCHLORIDE
  26. SERTRALINE HYDROCHLORIDE [Concomitant]
     Active Substance: SERTRALINE HYDROCHLORIDE
  27. MUCINEX [Concomitant]
     Active Substance: GUAIFENESIN
  28. METFORMIN [Concomitant]
     Active Substance: METFORMIN HYDROCHLORIDE
  29. Betametha [Concomitant]
  30. QUERCETIN [Concomitant]
     Active Substance: QUERCETIN
  31. ZINC [Concomitant]
     Active Substance: ZINC
  32. VITAMIN C [Concomitant]
     Active Substance: ASCORBIC ACID
  33. AZITHROMYCIN [Concomitant]
     Active Substance: AZITHROMYCIN
  34. PREDNISONE [Concomitant]
     Active Substance: PREDNISONE
  35. GUAIFENESIN [Concomitant]
     Active Substance: GUAIFENESIN
  36. LISINOPRIL [Concomitant]
     Active Substance: LISINOPRIL
  37. ACETAMINOPHEN [Concomitant]
     Active Substance: ACETAMINOPHEN
  38. HIZENTRA [Concomitant]
     Active Substance: HUMAN IMMUNOGLOBULIN G
  39. LIDOCAINE [Concomitant]
     Active Substance: LIDOCAINE

REACTIONS (24)
  - Pneumonia [Unknown]
  - Cystitis [Unknown]
  - Urinary retention [Unknown]
  - Erythema [Recovered/Resolved]
  - Skin irritation [Unknown]
  - Infection [Unknown]
  - Abdominal pain lower [Unknown]
  - Benign prostatic hyperplasia [Unknown]
  - Oliguria [Unknown]
  - Oedema [Unknown]
  - Urinary tract infection [Unknown]
  - Rash pruritic [Recovered/Resolved]
  - Infusion site rash [Unknown]
  - Injection site erythema [Unknown]
  - Injection site pruritus [Unknown]
  - COVID-19 [Unknown]
  - Nasal congestion [Unknown]
  - Device issue [Unknown]
  - Pallor [Unknown]
  - Skin discolouration [Unknown]
  - Feeling hot [Unknown]
  - Prescribed overdose [Unknown]
  - Oedema peripheral [Unknown]
  - Cough [Unknown]

NARRATIVE: CASE EVENT DATE: 20050816
